FAERS Safety Report 4758748-5 (Version None)
Quarter: 2005Q3

REPORT INFORMATION
  Report Type: 
  Country: None (occurrence: None)
  Receive Date: 20050826
  Receipt Date: 20050811
  Transmission Date: 20060218
  Serious: Yes (Hospitalization, Disabling)
  Sender: FDA-Public Use
  Company Number: 2005PV000707

PATIENT
  Age: 63 Year
  Sex: Female
  Weight: 124.7392 kg

DRUGS (5)
  1. BYETTA [Suspect]
     Indication: DIABETES MELLITUS NON-INSULIN-DEPENDENT
     Dosage: SEE IMAGE, SC
     Route: 058
     Dates: start: 20050620, end: 20050712
  2. BYETTA [Suspect]
     Indication: DIABETES MELLITUS NON-INSULIN-DEPENDENT
     Dosage: SEE IMAGE, SC
     Route: 058
     Dates: start: 20050713, end: 20050718
  3. BYETTA [Suspect]
     Indication: DIABETES MELLITUS NON-INSULIN-DEPENDENT
     Dosage: SEE IMAGE, SC
     Route: 058
     Dates: start: 20050729, end: 20050807
  4. NOVOLOG MIX 70/30 [Concomitant]
  5. NOVOLOG [Concomitant]

REACTIONS (10)
  - BLOOD GLUCOSE INCREASED [None]
  - CELLULITIS [None]
  - CONDITION AGGRAVATED [None]
  - DIARRHOEA [None]
  - DIFFICULTY IN WALKING [None]
  - DYSPEPSIA [None]
  - EXOSTOSIS [None]
  - NAUSEA [None]
  - PAIN IN EXTREMITY [None]
  - PRURITUS [None]
